FAERS Safety Report 21037642 (Version 3)
Quarter: 2022Q3

REPORT INFORMATION
  Report Type: Spontaneous
  Country: JP (occurrence: JP)
  Receive Date: 20220704
  Receipt Date: 20220815
  Transmission Date: 20221027
  Serious: No
  Sender: FDA-Public Use
  Company Number: JP-NOVARTISPH-NVSJ2022JP093153

PATIENT
  Age: 80 Year
  Sex: Female
  Weight: 53.8 kg

DRUGS (4)
  1. ENTRESTO [Suspect]
     Active Substance: SACUBITRIL\VALSARTAN
     Indication: Hypertension
     Dosage: 100 MG, QD
     Route: 048
     Dates: start: 20220617, end: 20220623
  2. ADALAT [Concomitant]
     Active Substance: NIFEDIPINE
     Indication: Hypertension
     Dosage: 20 MG, QD
     Route: 048
     Dates: start: 20220513, end: 20220524
  3. ADALAT [Concomitant]
     Active Substance: NIFEDIPINE
     Dosage: 40 MG, BID
     Route: 048
     Dates: start: 20220525
  4. CRESTOR [Concomitant]
     Active Substance: ROSUVASTATIN CALCIUM
     Indication: Hypercholesterolaemia
     Dosage: 2.5 MG, QD
     Route: 048
     Dates: start: 20220608

REACTIONS (3)
  - Hypotension [Recovered/Resolved]
  - Dizziness postural [Unknown]
  - Head discomfort [Unknown]

NARRATIVE: CASE EVENT DATE: 20220622
